FAERS Safety Report 18447026 (Version 1)
Quarter: 2020Q4

REPORT INFORMATION
  Report Type: Spontaneous
  Country: US (occurrence: US)
  Receive Date: 20201030
  Receipt Date: 20201030
  Transmission Date: 20210114
  Serious: Yes (Other)
  Sender: FDA-Public Use
  Company Number: None

PATIENT
  Age: 80 Year
  Sex: Male
  Weight: 71.67 kg

DRUGS (12)
  1. RANOLAZINE ER [Concomitant]
     Active Substance: RANOLAZINE
  2. PRALUENT [Concomitant]
     Active Substance: ALIROCUMAB
  3. MULTI-VITAMINS [Concomitant]
  4. GARLIC. [Concomitant]
     Active Substance: GARLIC
  5. PAROXETINE HCL CR TABS 25MG [Suspect]
     Active Substance: PAROXETINE HYDROCHLORIDE
     Indication: DEPRESSION
     Dosage: ?          QUANTITY:1 DF DOSAGE FORM;?
     Route: 048
     Dates: start: 20201006
  6. ASPIRIN. [Concomitant]
     Active Substance: ASPIRIN
  7. PAROXETINE HCL CR TABS 25MG [Suspect]
     Active Substance: PAROXETINE HYDROCHLORIDE
     Indication: ANXIETY
     Dosage: ?          QUANTITY:1 DF DOSAGE FORM;?
     Route: 048
     Dates: start: 20201006
  8. STOOL SOFTNER [Concomitant]
  9. CARVEDILOL. [Concomitant]
     Active Substance: CARVEDILOL
  10. CALCIUM MAGNESIUM ZINC [Concomitant]
     Active Substance: CALCIUM\MAGNESIUM\ZINC
  11. VITAMIN C [Concomitant]
     Active Substance: ASCORBIC ACID
  12. VITAMIN B COMPLEX [Concomitant]
     Active Substance: CYANOCOBALAMIN\DEXPANTHENOL\NIACINAMIDE\PYRIDOXINE HYDROCHLORIDE\RIBOFLAVIN 5^-PHOSPHATE SODIUM\THIAMINE HYDROCHLORIDE\VITAMIN B COMPLEX

REACTIONS (4)
  - Adverse food reaction [None]
  - Product substitution issue [None]
  - Product prescribing issue [None]
  - Adverse drug reaction [None]

NARRATIVE: CASE EVENT DATE: 20201004
